FAERS Safety Report 9243151 (Version 3)
Quarter: 2013Q4

REPORT INFORMATION
  Report Type: Spontaneous
  Country: GB (occurrence: GB)
  Receive Date: 20130419
  Receipt Date: 20131104
  Transmission Date: 20140711
  Serious: Yes (Life-Threatening, Hospitalization, Other)
  Sender: FDA-Public Use
  Company Number: GB-VERTEX PHARMACEUTICALS INC.-2013-005194

PATIENT
  Age: 53 Year
  Sex: Female
  Weight: 71 kg

DRUGS (3)
  1. INCIVO [Suspect]
     Indication: HEPATITIS C
     Dosage: 750 MG, QID
     Route: 048
     Dates: start: 20130111, end: 20130322
  2. RIBAVIRIN [Concomitant]
     Indication: PRODUCT USED FOR UNKNOWN INDICATION
     Dosage: UNK
     Route: 048
     Dates: start: 201301
  3. INTERFERON ALFA [Concomitant]
     Indication: PRODUCT USED FOR UNKNOWN INDICATION
     Dosage: UNK
     Route: 065
     Dates: start: 201301

REACTIONS (5)
  - Haemolytic uraemic syndrome [Recovered/Resolved]
  - Thrombotic microangiopathy [Unknown]
  - Malaise [Unknown]
  - Renal impairment [Recovered/Resolved]
  - Rash [Unknown]
